FAERS Safety Report 9563719 (Version 1)
Quarter: 2013Q3

REPORT INFORMATION
  Report Type: Spontaneous
  Country: US (occurrence: None)
  Receive Date: 20130926
  Receipt Date: 20130926
  Transmission Date: 20140515
  Serious: No
  Sender: FDA-Public Use
  Company Number: None

PATIENT
  Age: 71 Year
  Sex: Male
  Weight: 96.8 kg

DRUGS (2)
  1. AMOXICILLIN/CLAVULANATE [Suspect]
     Indication: DIABETES MELLITUS
     Route: 048
     Dates: start: 20130308, end: 20130318
  2. AMOXICILLIN/CLAVULANATE [Suspect]
     Indication: LOCALISED INFECTION
     Route: 048
     Dates: start: 20130308, end: 20130318

REACTIONS (2)
  - Rash [None]
  - Eye swelling [None]
